FAERS Safety Report 7176800-4 (Version None)
Quarter: 2010Q4

REPORT INFORMATION
  Report Type: 
  Country: None (occurrence: None)
  Receive Date: 20101215
  Receipt Date: 20101215
  Transmission Date: 20110411
  Serious: Yes (Other)
  Sender: FDA-Public Use
  Company Number: None

PATIENT
  Age: 62 Year
  Sex: Female
  Weight: 77.1115 kg

DRUGS (1)
  1. VICTOZA [Suspect]
     Indication: DIABETES MELLITUS
     Dosage: 1.2 MG DAILY SQ
     Route: 058
     Dates: start: 20101211, end: 20101212

REACTIONS (5)
  - ASTHENIA [None]
  - DRUG TOXICITY [None]
  - FEELING ABNORMAL [None]
  - NAUSEA [None]
  - VOMITING [None]
